FAERS Safety Report 8483189-7 (Version None)
Quarter: 2012Q3

REPORT INFORMATION
  Report Type: 
  Country: None (occurrence: None)
  Receive Date: 20120702
  Receipt Date: 20120629
  Transmission Date: 20120928
  Serious: Yes (Life-Threatening, Hospitalization)
  Sender: FDA-Public Use
  Company Number: PHHO2012IT009750

PATIENT
  Sex: Male
  Weight: 80 kg

DRUGS (12)
  1. TASIGNA [Suspect]
     Indication: CHRONIC MYELOID LEUKAEMIA
     Dosage: 300 MG, BID
     Route: 048
     Dates: start: 20100729, end: 20120628
  2. LOSARTAN POTASSIUM [Concomitant]
     Indication: HYPERTENSION
     Dosage: UNK
     Dates: start: 20010101, end: 20120627
  3. ZYLORIC ^FRESENIUS^ [Concomitant]
     Indication: HYPERURICAEMIA
     Dosage: UNK
     Dates: start: 20010101, end: 20120627
  4. RABEPRAZOLE SODIUM [Concomitant]
     Indication: PROPHYLAXIS
     Dosage: UNK
     Dates: start: 20100812, end: 20100627
  5. BISOPROLOL FUMARATE [Concomitant]
     Indication: HYPERTENSION
     Dosage: UNK
     Dates: start: 20010101, end: 20120627
  6. LASIX [Concomitant]
     Indication: HYPERTENSION
     Dosage: 25 MG, QW3
     Route: 048
     Dates: start: 20010101, end: 20120627
  7. ASPIRIN [Concomitant]
     Indication: HYPERTENSION
     Dosage: 100 MG, UNK
     Route: 048
     Dates: start: 20010101, end: 20120627
  8. NORVASC [Concomitant]
     Indication: HYPERTENSION
     Dosage: UNK
     Dates: start: 20010101, end: 20120627
  9. DISOXYL [Concomitant]
     Indication: HYPERCHOLESTEROLAEMIA
     Dosage: UNK
     Dates: start: 20010101, end: 20120627
  10. ESKIM [Concomitant]
     Indication: HYPERCHOLESTEROLAEMIA
     Dosage: UNK
     Dates: start: 20010101, end: 20120627
  11. METFORMIN HCL [Concomitant]
     Indication: DIABETES MELLITUS
     Dosage: UNK
     Dates: start: 20060101, end: 20120617
  12. SIMVASTATIN [Concomitant]
     Indication: HYPERCHOLESTEROLAEMIA
     Dosage: UNK
     Dates: start: 20010101, end: 20120627

REACTIONS (1)
  - ARTERIOSCLEROSIS CORONARY ARTERY [None]
